FAERS Safety Report 23226648 (Version 2)
Quarter: 2023Q4

REPORT INFORMATION
  Report Type: Report from Study
  Country: CH (occurrence: CH)
  Receive Date: 20231124
  Receipt Date: 20231130
  Transmission Date: 20240109
  Serious: Yes (Hospitalization)
  Sender: FDA-Public Use
  Company Number: CH-002147023-NVSC2023CH247716

PATIENT
  Age: 81 Year
  Sex: Female
  Weight: 64.05 kg

DRUGS (13)
  1. PREDNISONE [Suspect]
     Active Substance: PREDNISONE
     Indication: Giant cell arteritis
     Dosage: DOSE BLINDED
     Route: 048
     Dates: start: 20230626
  2. PREDNISONE [Suspect]
     Active Substance: PREDNISONE
     Indication: Giant cell arteritis
     Dosage: 40 MG, QD
     Route: 048
     Dates: start: 20230523
  3. COSENTYX [Suspect]
     Active Substance: SECUKINUMAB
     Indication: Giant cell arteritis
     Dosage: UNK
     Route: 058
     Dates: start: 20230522
  4. CHOLECALCIFEROL [Concomitant]
     Active Substance: CHOLECALCIFEROL
     Indication: Prophylaxis
     Dosage: UNK
     Route: 065
     Dates: start: 20230418
  5. CHOLECALCIFEROL [Concomitant]
     Active Substance: CHOLECALCIFEROL
     Indication: Osteopenia
  6. ASPIRIN [Concomitant]
     Active Substance: ASPIRIN
     Indication: Carotid artery stenosis
     Dosage: UNK
     Route: 065
     Dates: start: 20230505, end: 20231124
  7. ATORVASTATIN [Concomitant]
     Active Substance: ATORVASTATIN
     Indication: Hypercholesterolaemia
     Dosage: UNK
     Route: 065
     Dates: start: 20230508
  8. CANDESARTAN [Concomitant]
     Active Substance: CANDESARTAN
     Indication: Hypertension
     Dosage: UNK
     Route: 065
     Dates: start: 20230524
  9. NEXIUM [Concomitant]
     Active Substance: ESOMEPRAZOLE MAGNESIUM
     Indication: Erosive duodenitis
     Dosage: UNK
     Route: 065
     Dates: start: 20230626
  10. NEXIUM [Concomitant]
     Active Substance: ESOMEPRAZOLE MAGNESIUM
     Indication: Gastric ulcer
  11. PREDNISONE [Concomitant]
     Active Substance: PREDNISONE
     Indication: Giant cell arteritis
     Dosage: UNK
     Route: 065
     Dates: start: 20231103, end: 20231107
  12. PREDNISONE [Concomitant]
     Active Substance: PREDNISONE
     Dosage: UNK
     Route: 065
     Dates: start: 20231108, end: 20231121
  13. VAXIGRIP [Concomitant]
     Active Substance: INFLUENZA VIRUS VACCINE
     Indication: General physical condition
     Dosage: UNK
     Route: 065
     Dates: start: 20231113, end: 20231113

REACTIONS (2)
  - Pulmonary embolism [Not Recovered/Not Resolved]
  - Dyspnoea [Not Recovered/Not Resolved]

NARRATIVE: CASE EVENT DATE: 20231120
